FAERS Safety Report 14861310 (Version 1)
Quarter: 2018Q2

REPORT INFORMATION
  Report Type: Report from Study
  Country: BR (occurrence: BR)
  Receive Date: 20180508
  Receipt Date: 20180508
  Transmission Date: 20180711
  Serious: Yes (Other)
  Sender: FDA-Public Use
  Company Number: BR-JNJFOC-20180502661

PATIENT
  Sex: Female

DRUGS (2)
  1. NOVALGINA [Concomitant]
     Active Substance: METAMIZOLE SODIUM
  2. STELARA [Suspect]
     Active Substance: USTEKINUMAB
     Indication: PSORIASIS
     Route: 058
     Dates: start: 20160411

REACTIONS (1)
  - Memory impairment [Not Recovered/Not Resolved]
